FAERS Safety Report 6238089-X (Version None)
Quarter: 2009Q2

REPORT INFORMATION
  Report Type: 
  Country: None (occurrence: None)
  Receive Date: 20090617
  Receipt Date: 20090617
  Transmission Date: 20091009
  Serious: Yes (Death)
  Sender: FDA-Public Use
  Company Number: None

PATIENT
  Sex: Male
  Weight: 81.6475 kg

DRUGS (2)
  1. FENTANYL TRANSDERMAL SYSTEM [Suspect]
     Indication: BACK PAIN
     Dosage: INCREASED UP TO 75 MCG TRANSDERMAL
     Route: 062
     Dates: start: 20090424, end: 20090430
  2. FENTANYL TRANSDERMAL SYSTEM [Suspect]
     Indication: NEOPLASM MALIGNANT
     Dosage: INCREASED UP TO 75 MCG TRANSDERMAL
     Route: 062
     Dates: start: 20090424, end: 20090430

REACTIONS (7)
  - COLD SWEAT [None]
  - DISORIENTATION [None]
  - FEELING COLD [None]
  - LETHARGY [None]
  - MENTAL STATUS CHANGES [None]
  - OVERDOSE [None]
  - RESPIRATORY ARREST [None]
